FAERS Safety Report 9593186 (Version 2)
Quarter: 2015Q2

REPORT INFORMATION
  Report Type: Spontaneous
  Country: CA (occurrence: CA)
  Receive Date: 20131004
  Receipt Date: 20150520
  Transmission Date: 20150821
  Serious: Yes (Other)
  Sender: FDA-Public Use
  Company Number: PHHY2013CA107939

PATIENT
  Age: 69 Year
  Sex: Male

DRUGS (8)
  1. PRIMIDONE. [Concomitant]
     Active Substance: PRIMIDONE
     Dosage: 500 MG, QD
     Dates: start: 200903
  2. PRIMIDONE. [Concomitant]
     Active Substance: PRIMIDONE
     Dosage: 375 MG, QD
     Dates: start: 200903
  3. GABAPENTIN. [Suspect]
     Active Substance: GABAPENTIN
     Dosage: 1500 MG DAILY
     Route: 065
  4. GABAPENTIN. [Suspect]
     Active Substance: GABAPENTIN
     Indication: ESSENTIAL TREMOR
     Dosage: 300 MG AT BED TIME ON DAY 1
     Route: 065
  5. GABAPENTIN. [Suspect]
     Active Substance: GABAPENTIN
     Dosage: 300 MG, TID, ON DAY 3
     Route: 065
  6. PRIMIDONE. [Concomitant]
     Active Substance: PRIMIDONE
     Indication: ESSENTIAL TREMOR
     Dosage: 25 MG, QD
  7. PRIMIDONE. [Concomitant]
     Active Substance: PRIMIDONE
     Dosage: 250 MG, QD
     Dates: start: 200903
  8. GABAPENTIN. [Suspect]
     Active Substance: GABAPENTIN
     Dosage: 300 MG, BID ON DAY 2
     Route: 065

REACTIONS (6)
  - Diplopia [Recovered/Resolved]
  - Myasthenia gravis [Recovered/Resolved]
  - Eyelid ptosis [Recovered/Resolved]
  - Muscular weakness [Recovered/Resolved]
  - Off label use [Recovered/Resolved]
  - Mastication disorder [Recovered/Resolved]
